FAERS Safety Report 5515063-X (Version None)
Quarter: 2007Q4

REPORT INFORMATION
  Report Type: 
  Country: None (occurrence: None)
  Receive Date: 20071113
  Receipt Date: 20061208
  Transmission Date: 20080405
  Serious: No
  Sender: FDA-Public Use
  Company Number: A0630971A

PATIENT
  Age: 67 Year
  Sex: Male

DRUGS (9)
  1. COREG [Suspect]
     Indication: HYPERTENSION
     Dosage: 12.5MG TWICE PER DAY
     Route: 048
     Dates: start: 20060801
  2. AMIODARONE HCL [Suspect]
     Indication: ATRIAL FIBRILLATION
     Dosage: 400MG PER DAY
     Route: 048
     Dates: start: 20060801
  3. MICARDIS [Concomitant]
  4. NIASPAN [Concomitant]
  5. WARFARIN SODIUM [Concomitant]
  6. ASPIRIN [Concomitant]
  7. SAW PALMETTO [Concomitant]
  8. CO Q 10 [Concomitant]
  9. MAGNESIUM SULFATE [Concomitant]

REACTIONS (7)
  - ATRIAL FIBRILLATION [None]
  - DRUG ADMINISTRATION ERROR [None]
  - DRUG INTERACTION [None]
  - HEART RATE DECREASED [None]
  - HYPOTENSION [None]
  - LABILE BLOOD PRESSURE [None]
  - PROTHROMBIN TIME ABNORMAL [None]
